FAERS Safety Report 5800426-5 (Version None)
Quarter: 2008Q3

REPORT INFORMATION
  Report Type: 
  Country: None (occurrence: None)
  Receive Date: 20080703
  Receipt Date: 20080626
  Transmission Date: 20090109
  Serious: Yes (Hospitalization)
  Sender: FDA-Public Use
  Company Number: US-BAYER-200824772NA

PATIENT
  Sex: Female
  Weight: 59 kg

DRUGS (9)
  1. AVELOX [Suspect]
     Indication: SINUSITIS
     Dosage: TOTAL DAILY DOSE: 400 MG  UNIT DOSE: 400 MG
     Route: 048
     Dates: start: 20080310, end: 20080312
  2. AVELOX [Suspect]
     Dosage: TOTAL DAILY DOSE: 400 MG  UNIT DOSE: 400 MG
     Route: 048
     Dates: start: 20080303, end: 20080308
  3. TAMIFLU [Suspect]
  4. CIPRO [Suspect]
     Route: 048
     Dates: start: 20080313
  5. TOPAMAX [Concomitant]
  6. WELLBUTRIN [Concomitant]
  7. KLONOPIN [Concomitant]
  8. NASONEX [Concomitant]
  9. MAXALT [Concomitant]

REACTIONS (14)
  - ABDOMINAL DISTENSION [None]
  - ABDOMINAL PAIN [None]
  - ABDOMINAL TENDERNESS [None]
  - CLOSTRIDIAL INFECTION [None]
  - DIARRHOEA [None]
  - FEELING ABNORMAL [None]
  - GASTROINTESTINAL INFLAMMATION [None]
  - LOCAL SWELLING [None]
  - NAUSEA [None]
  - PAIN [None]
  - PALPITATIONS [None]
  - PYREXIA [None]
  - TREMOR [None]
  - VOMITING [None]
